FAERS Safety Report 6244916-2 (Version None)
Quarter: 2009Q2

REPORT INFORMATION
  Report Type: 
  Country: None (occurrence: None)
  Receive Date: 20090625
  Receipt Date: 20090612
  Transmission Date: 20091009
  Serious: Yes (Other)
  Sender: FDA-Public Use
  Company Number: PHHY2009BR23511

PATIENT
  Sex: Female

DRUGS (5)
  1. EXFORGE [Suspect]
     Dosage: 1 DF (160/5) DAILY
  2. EXFORGE [Suspect]
     Dosage: 0.5 DF (160/5) DAILY
  3. EXFORGE [Suspect]
     Dosage: 1 DF (160/5) DAILY
  4. GLUCOVANCE [Concomitant]
  5. SIMVASTATIN [Concomitant]

REACTIONS (6)
  - CARDIAC DISORDER [None]
  - CARDIAC OPERATION [None]
  - DIZZINESS [None]
  - FEELING ABNORMAL [None]
  - LABYRINTHITIS [None]
  - VASCULAR GRAFT [None]
